FAERS Safety Report 7361309-5 (Version None)
Quarter: 2011Q1

REPORT INFORMATION
  Report Type: 
  Country: None (occurrence: None)
  Receive Date: 20110318
  Receipt Date: 20110315
  Transmission Date: 20110831
  Serious: Yes (Other)
  Sender: FDA-Public Use
  Company Number: A0918316A

PATIENT
  Age: 51 Year
  Sex: Female

DRUGS (10)
  1. RANITIDINE [Concomitant]
  2. ADVAIR DISKUS 100/50 [Suspect]
     Indication: CHRONIC OBSTRUCTIVE PULMONARY DISEASE
     Dosage: 1PUFF TWICE PER DAY
     Route: 055
     Dates: start: 20100101
  3. CYCLOBENZAPRINE [Concomitant]
  4. VENTOLIN [Concomitant]
  5. TRAZODONE HCL [Concomitant]
  6. SPIRIVA [Concomitant]
  7. SIMVASTATIN [Concomitant]
  8. EFFEXOR [Concomitant]
  9. DOCUSATE [Concomitant]
  10. LYRICA [Concomitant]

REACTIONS (5)
  - OROPHARYNGEAL PAIN [None]
  - PRODUCT QUALITY ISSUE [None]
  - COUGH [None]
  - CHOKING [None]
  - SKIN DISCOLOURATION [None]
